FAERS Safety Report 6648083-2 (Version None)
Quarter: 2010Q1

REPORT INFORMATION
  Report Type: 
  Country: None (occurrence: None)
  Receive Date: 20100319
  Receipt Date: 20100304
  Transmission Date: 20100710
  Serious: Yes (Death, Hospitalization)
  Sender: FDA-Public Use
  Company Number: 2009003894

PATIENT
  Age: 54 Year
  Sex: Male

DRUGS (12)
  1. ERLOTINIB (ERLOTINIB) (TABLET) (ERLOTINIB) [Suspect]
     Indication: GLIOBLASTOMA
     Dosage: 150 MG/M2, ORAL
     Route: 048
     Dates: start: 20090925, end: 20091203
  2. BEVACIZUMAB [Suspect]
     Indication: GLIOBLASTOMA
     Dosage: 10 MG/KG, Q2W, INTRAVENOUS
     Route: 042
     Dates: start: 20091007, end: 20091123
  3. TEMOZOLOMIDE [Suspect]
     Indication: GLIOBLASTOMA
     Dosage: 200 MG/M2, ORAL
     Route: 048
     Dates: start: 20090925, end: 20091127
  4. KEPPRA [Concomitant]
  5. PRILOSEC [Concomitant]
  6. TYLENOL [Concomitant]
  7. COLACE (DOCUSATE SODIUM) [Concomitant]
  8. BACTRIM DS [Concomitant]
  9. VALSARTAN [Concomitant]
  10. MINOCYCLINE HCL [Concomitant]
  11. DECADRON [Concomitant]
  12. MEGACE [Concomitant]

REACTIONS (11)
  - ASPERGILLOSIS [None]
  - ASTHENIA [None]
  - BRONCHIAL FISTULA [None]
  - BRONCHOPULMONARY ASPERGILLOSIS [None]
  - CEREBRAL ASPERGILLOSIS [None]
  - FUNGAL SKIN INFECTION [None]
  - LYMPHOPENIA [None]
  - OPPORTUNISTIC INFECTION [None]
  - PNEUMOTHORAX [None]
  - PRODUCTIVE COUGH [None]
  - SPUTUM DISCOLOURED [None]
